FAERS Safety Report 17118840 (Version 2)
Quarter: 2020Q2

REPORT INFORMATION
  Report Type: Spontaneous
  Country: US (occurrence: US)
  Receive Date: 20191206
  Receipt Date: 20200402
  Transmission Date: 20200713
  Serious: No
  Sender: FDA-Public Use
  Company Number: US-UCBSA-2017031812

PATIENT
  Sex: Female

DRUGS (3)
  1. NEUPRO [Suspect]
     Active Substance: ROTIGOTINE
     Indication: RESTLESS LEGS SYNDROME
     Dosage: 4 MG DAILY
  2. NEUPRO [Suspect]
     Active Substance: ROTIGOTINE
     Dosage: 5 MG DAILY  (4 MG+ 1 MG )
  3. NEUPRO [Suspect]
     Active Substance: ROTIGOTINE
     Dosage: UNKNOWN

REACTIONS (4)
  - Overdose [Unknown]
  - Restless legs syndrome [Unknown]
  - Therapeutic product effect incomplete [Unknown]
  - Off label use [Unknown]
